FAERS Safety Report 4773292-7 (Version None)
Quarter: 2005Q3

REPORT INFORMATION
  Report Type: 
  Country: None (occurrence: None)
  Receive Date: 20050916
  Receipt Date: 20050906
  Transmission Date: 20060218
  Serious: Yes (Hospitalization)
  Sender: FDA-Public Use
  Company Number: 2005BI010653

PATIENT
  Sex: Female

DRUGS (1)
  1. AVONEX [Suspect]
     Indication: MULTIPLE SCLEROSIS
     Dosage: 30 UG;QW;IM
     Route: 030
     Dates: start: 19990101, end: 20050501

REACTIONS (3)
  - DRUG DOSE OMISSION [None]
  - MULTIPLE SCLEROSIS RELAPSE [None]
  - TREATMENT NONCOMPLIANCE [None]
